FAERS Safety Report 11496081 (Version 1)
Quarter: 2015Q3

REPORT INFORMATION
  Report Type: Spontaneous
  Country: JP (occurrence: JP)
  Receive Date: 20150911
  Receipt Date: 20150911
  Transmission Date: 20151125
  Serious: Yes (Death)
  Sender: FDA-Public Use
  Company Number: JP-MALLINCKRODT-T201504296

PATIENT
  Age: 79 Year
  Sex: Female
  Weight: 40 kg

DRUGS (15)
  1. NEOPAREN [Concomitant]
     Active Substance: AMINO ACIDS\DEXTROSE\ELECTROLYTES NOS
     Dosage: UNK
     Route: 051
     Dates: start: 20141112, end: 20141201
  2. ELEJECT [Concomitant]
     Dosage: UNK
     Route: 051
     Dates: start: 20141112, end: 20141201
  3. MAGMITT [Concomitant]
     Active Substance: MAGNESIUM OXIDE
     Dosage: 1980 MG
     Route: 048
     Dates: start: 20140222, end: 20141201
  4. PYRINAZIN [Concomitant]
     Active Substance: ACETAMINOPHEN
     Indication: ANALGESIC THERAPY
     Dosage: 3200 MG
     Route: 048
     Dates: start: 20141112, end: 20141201
  5. SENNOSIDE [Concomitant]
     Active Substance: SENNOSIDES
     Dosage: 24 MG
     Route: 048
     Dates: start: 20140308, end: 20141201
  6. BROTIZOLAM [Concomitant]
     Active Substance: BROTIZOLAM
     Dosage: 0.25 MG
     Route: 048
     Dates: start: 20140608, end: 20141201
  7. LINOLOSAL [Concomitant]
     Indication: ANALGESIC THERAPY
     Dosage: 4 MG
     Route: 051
     Dates: start: 20141112, end: 20141201
  8. METHADONE [Suspect]
     Active Substance: METHADONE HYDROCHLORIDE
     Indication: CANCER PAIN
     Dosage: 15 MG (45 MG DAILY DOSE)
     Route: 048
     Dates: start: 20141125, end: 20141201
  9. MORPHINE HYDROCHLORIDE [Concomitant]
     Active Substance: MORPHINE HYDROCHLORIDE
     Indication: ANALGESIC THERAPY
     Dosage: 18 MG, PRN
     Route: 051
     Dates: start: 20141124
  10. ADONA [Concomitant]
     Active Substance: CARBAZOCHROME SODIUM SULFONATE
     Dosage: 90 MG
     Route: 048
     Dates: start: 20140904, end: 20141201
  11. MORPHINE HYDROCHLORIDE [Concomitant]
     Active Substance: MORPHINE HYDROCHLORIDE
     Dosage: 432 MG
     Route: 051
     Dates: start: 20141112, end: 20141127
  12. VITAJECT [Concomitant]
     Active Substance: CYANOCOBALAMIN\PYRIDOXAMINE HYDROCHLORIDE\THIAMINE HYDROCHLORIDE
     Dosage: UNK
     Route: 051
     Dates: start: 20141112, end: 20141201
  13. ROPION [Concomitant]
     Active Substance: FLURBIPROFEN AXETIL
     Dosage: 100 MG
     Route: 051
     Dates: start: 20141112, end: 20141201
  14. TAKEPRON [Concomitant]
     Active Substance: LANSOPRAZOLE
     Dosage: 30 MG
     Route: 048
     Dates: start: 20140308, end: 20141201
  15. TRANSAMIN [Concomitant]
     Active Substance: TRANEXAMIC ACID
     Dosage: 750 MG
     Route: 048
     Dates: start: 20140904, end: 20141201

REACTIONS (1)
  - Breast cancer [Fatal]
